FAERS Safety Report 10089731 (Version 2)
Quarter: 2015Q1

REPORT INFORMATION
  Report Type: Spontaneous
  Country: GB (occurrence: GB)
  Receive Date: 20140421
  Receipt Date: 20150220
  Transmission Date: 20150720
  Serious: Yes (Disabling)
  Sender: FDA-Public Use
  Company Number: GB-TEVA-475779ISR

PATIENT
  Age: 62 Year
  Sex: Female
  Weight: 68 kg

DRUGS (14)
  1. DUROGESIC D TRANS 25 MCG/H [Concomitant]
     Indication: BACK PAIN
     Dosage: 2 PATCHES EVERY 72 HOURS FOR CHRONIC BACK PAIN
  2. SIMVASTATIN. [Concomitant]
     Active Substance: SIMVASTATIN
     Indication: HYPERCHOLESTEROLAEMIA
  3. ATENOLOL. [Concomitant]
     Active Substance: ATENOLOL
     Dosage: 50 MILLIGRAM DAILY;
  4. IBUPROFEN. [Concomitant]
     Active Substance: IBUPROFEN
     Dosage: 1200 MILLIGRAM DAILY; THREE TIMES DAILY PRN
  5. LOSARTAN [Concomitant]
     Active Substance: LOSARTAN
     Indication: HYPERTENSION
     Dosage: 100 MILLIGRAM DAILY;
  6. CLONIDINE. [Concomitant]
     Active Substance: CLONIDINE
     Indication: FLUSHING
     Dosage: 150 MILLIGRAM DAILY; 50MG THREE TIMES DAILY FOR MENOPAUSAL FLUSHING
  7. DOXYCYCLINE. [Suspect]
     Active Substance: DOXYCYCLINE
     Indication: SINUSITIS
     Dosage: 200MG TO START AND THEN 100MG DAILY
     Route: 048
     Dates: start: 20140228, end: 20140307
  8. PROCHLORPERAZINE. [Concomitant]
     Active Substance: PROCHLORPERAZINE
     Dosage: 1-2 THREE TIMES DAILY - WHEN REQUIRED
  9. DILTIAZEM [Concomitant]
     Active Substance: DILTIAZEM
     Dosage: 120 MILLIGRAM DAILY; 120MG MODIFIED RELEASE ONCE DAILY
  10. FEXOFENADINE [Concomitant]
     Active Substance: FEXOFENADINE\FEXOFENADINE HYDROCHLORIDE
  11. LOPERAMIDE [Concomitant]
     Active Substance: LOPERAMIDE
     Dosage: AS REQUIRED
  12. PARACETAMOL [Concomitant]
     Active Substance: ACETAMINOPHEN
     Dosage: 1G FOUR TIMES DAILY
  13. DOXEPIN [Concomitant]
     Active Substance: DOXEPIN
     Indication: PRURITUS
     Dosage: 5 % CREAM THREE TIMES DAILY PRN
  14. OMEPRAZOLE. [Concomitant]
     Active Substance: OMEPRAZOLE

REACTIONS (2)
  - Tongue oedema [Unknown]
  - Tongue discolouration [Recovering/Resolving]

NARRATIVE: CASE EVENT DATE: 20140303
